FAERS Safety Report 23958107 (Version 1)
Quarter: 2024Q2

REPORT INFORMATION
  Report Type: Report from Study
  Country: DE (occurrence: DE)
  Receive Date: 20240610
  Receipt Date: 20240610
  Transmission Date: 20240716
  Serious: Yes (Hospitalization)
  Sender: FDA-Public Use
  Company Number: DE-VER-202400004

PATIENT
  Age: 57 Year
  Sex: Male
  Weight: 109 kg

DRUGS (7)
  1. TRIPTORELIN [Suspect]
     Active Substance: TRIPTORELIN
     Indication: Prostate cancer
     Dosage: POWDER AND SOLVENT FOR SUSPENSION FOR INJECTION, 22.5 MILLIGRAM(S), IN 24 WEEK
     Route: 058
     Dates: start: 20230502, end: 20230502
  2. TRIPTORELIN [Suspect]
     Active Substance: TRIPTORELIN
     Indication: Prostate cancer
     Dosage: POWDER AND SOLVENT FOR SUSPENSION FOR INJECTION, 22.5 MILLIGRAM(S), IN 24 WEEK
     Route: 058
     Dates: start: 20231101, end: 20231101
  3. B VITAMIN KOMPLEX [Concomitant]
     Indication: Prophylaxis
     Dosage: 1 DOSAGE FORM, IN 1 DAY
     Route: 048
     Dates: start: 202306
  4. LATANOPROST [Concomitant]
     Active Substance: LATANOPROST
     Indication: Glaucoma
     Dosage: 1 DROP(S), IN 1 DAY
     Route: 047
     Dates: start: 2018
  5. EDOXABAN TOSYLATE [Concomitant]
     Active Substance: EDOXABAN TOSYLATE
     Indication: Thrombosis
     Dosage: 60 MILLIGRAM(S), IN 1 DAY
     Route: 048
     Dates: start: 20211222
  6. SELENIUM [Concomitant]
     Active Substance: SELENIUM
     Indication: Prophylaxis
     Dosage: 1 UNIT, IN 1 MONTH.
     Route: 042
     Dates: start: 202306
  7. VITAMIN D [Concomitant]
     Active Substance: VITAMIN D NOS
     Indication: Prophylaxis
     Dosage: 20000 INTERNATIONAL UNIT(S), IN 1 DAY
     Route: 048
     Dates: start: 202306

REACTIONS (1)
  - Inguinal hernia [Recovered/Resolved]

NARRATIVE: CASE EVENT DATE: 20231201
